FAERS Safety Report 4333012-7 (Version None)
Quarter: 2004Q1

REPORT INFORMATION
  Report Type: 
  Country: None (occurrence: None)
  Receive Date: 20040330
  Receipt Date: 20040319
  Transmission Date: 20041129
  Serious: Yes (Hospitalization)
  Sender: FDA-Public Use
  Company Number: 2003180260FR

PATIENT
  Age: 3 Year
  Sex: Male

DRUGS (8)
  1. GENOTROPIN [Suspect]
     Indication: RENAL FAILURE CHRONIC
     Dosage: 5.6 MG, WEEKLY, 7 INJ/WEEK, SUBCUTANEOUS
     Route: 058
     Dates: start: 20020522
  2. EPOETIN BETA (EPOETIN BETA) [Concomitant]
  3. SODIUM CHLORIDE INJ [Concomitant]
  4. SPECIAFOLDINE [Concomitant]
  5. FUMAFER [Concomitant]
  6. SODIUM BICARBONATE [Concomitant]
  7. CALCIUM CARBONATE [Concomitant]
  8. UN-ALFA (ALFACALCIDOL) [Concomitant]

REACTIONS (16)
  - BLOOD CHLORIDE DECREASED [None]
  - BLOOD CREATININE INCREASED [None]
  - BLOOD GLUCOSE INCREASED [None]
  - BLOOD POTASSIUM DECREASED [None]
  - BLOOD UREA INCREASED [None]
  - CONDITION AGGRAVATED [None]
  - DEHYDRATION [None]
  - DIARRHOEA [None]
  - GASTROENTERITIS [None]
  - LABORATORY TEST ABNORMAL [None]
  - PCO2 DECREASED [None]
  - PYELONEPHRITIS ACUTE [None]
  - RASH MORBILLIFORM [None]
  - RENAL FAILURE CHRONIC [None]
  - SCAR [None]
  - VOMITING [None]
